FAERS Safety Report 16745182 (Version 20)
Quarter: 2024Q4

REPORT INFORMATION
  Report Type: Spontaneous
  Country: US (occurrence: US)
  Receive Date: 20190827
  Receipt Date: 20241128
  Transmission Date: 20250115
  Serious: Yes (Other)
  Sender: PFIZER
  Company Number: US-PFIZER INC-2019363313

PATIENT
  Age: 79 Year
  Sex: Female
  Weight: 52.16 kg

DRUGS (10)
  1. XELJANZ [Suspect]
     Active Substance: TOFACITINIB CITRATE
     Dosage: 10 MG
  2. XELJANZ [Suspect]
     Active Substance: TOFACITINIB CITRATE
     Dosage: 5 MG
  3. XELJANZ [Suspect]
     Active Substance: TOFACITINIB CITRATE
     Dosage: 5 MG, 2X/DAY
  4. XELJANZ [Suspect]
     Active Substance: TOFACITINIB CITRATE
     Dosage: 5 MG
  5. ATORVASTATIN [Concomitant]
     Active Substance: ATORVASTATIN
     Dosage: UNK
  6. METOPROLOL [Concomitant]
     Active Substance: METOPROLOL
     Dosage: UNK
  7. LOSARTAN [Concomitant]
     Active Substance: LOSARTAN
     Dosage: UNK
  8. AMLODIPINE [Concomitant]
     Active Substance: AMLODIPINE BESYLATE
     Dosage: UNK
  9. MONTELUKAST [Concomitant]
     Active Substance: MONTELUKAST
     Dosage: UNK
  10. RALOXIFENE [Concomitant]
     Active Substance: RALOXIFENE
     Dosage: UNK

REACTIONS (11)
  - Choking [Unknown]
  - Coagulopathy [Unknown]
  - Hypertension [Unknown]
  - Pharyngeal disorder [Unknown]
  - Rash macular [Unknown]
  - Hypoacusis [Unknown]
  - Blood cholesterol abnormal [Unknown]
  - Hypersensitivity [Unknown]
  - Nasal congestion [Unknown]
  - Oropharyngeal discomfort [Unknown]
  - Product storage error [Unknown]
